FAERS Safety Report 9721427 (Version 2)
Quarter: 2014Q1

REPORT INFORMATION
  Report Type: Spontaneous
  Country: BR (occurrence: BR)
  Receive Date: 20131129
  Receipt Date: 20140117
  Transmission Date: 20141002
  Serious: Yes (Other)
  Sender: FDA-Public Use
  Company Number: BR-ABBVIE-13P-020-1174432-00

PATIENT
  Sex: Female

DRUGS (6)
  1. SYNTHROID [Suspect]
     Indication: HYPERTHYROIDISM
     Dates: start: 1983
  2. SYNTHROID [Suspect]
     Dosage: 150 MICROGRAM DAILY; IN THE MORNING, FASTING
     Route: 048
     Dates: start: 2009
  3. SYNTHROID [Suspect]
     Route: 048
  4. ACTONEL [Concomitant]
     Indication: MINERAL SUPPLEMENTATION
     Dosage: 1 TABLET PER MONTH
     Route: 048
     Dates: start: 2013
  5. CALCIUM W/MAGNESIUM/VITAMIN D [Concomitant]
     Indication: OSTEOPENIA
     Dosage: 2 TABLET DAILY; FORM STRENGTH: ^200/200^
     Route: 048
     Dates: start: 2013
  6. LIVIAL [Concomitant]
     Indication: MENOPAUSE
     Route: 048
     Dates: start: 2013

REACTIONS (6)
  - Thyroid cancer [Unknown]
  - Thyroidectomy [Unknown]
  - Somnolence [Not Recovered/Not Resolved]
  - Listless [Not Recovered/Not Resolved]
  - Depression [Not Recovered/Not Resolved]
  - Asthenia [Not Recovered/Not Resolved]
